FAERS Safety Report 23031701 (Version 1)
Quarter: 2023Q4

REPORT INFORMATION
  Report Type: Spontaneous
  Country: DE (occurrence: DE)
  Receive Date: 20231005
  Receipt Date: 20231005
  Transmission Date: 20240110
  Serious: Yes (Other)
  Sender: FDA-Public Use
  Company Number: DE-BRISTOL-MYERS SQUIBB COMPANY-2023-137763

PATIENT
  Age: 75 Year
  Sex: Male

DRUGS (8)
  1. NIVOLUMAB [Suspect]
     Active Substance: NIVOLUMAB
     Indication: Malignant melanoma
     Dates: start: 20200303, end: 202306
  2. NIVOLUMAB [Suspect]
     Active Substance: NIVOLUMAB
     Dosage: CONTINUATION OF IMMUNE COMBINATION THERAPY WITH 2ND ADMINISTRATION
     Dates: start: 20200519
  3. NIVOLUMAB [Suspect]
     Active Substance: NIVOLUMAB
     Dosage: 3RD AND 4TH ADMINISTRATION FOLLOWED (EACH AT AN INTERVAL OF 3 WEEKS)
  4. NIVOLUMAB [Suspect]
     Active Substance: NIVOLUMAB
     Dosage: 3RD AND 4TH ADMINISTRATION FOLLOWED (EACH AT AN INTERVAL OF 3 WEEKS)
  5. IPILIMUMAB [Suspect]
     Active Substance: IPILIMUMAB
     Indication: Malignant melanoma
     Dates: start: 20200303, end: 202306
  6. IPILIMUMAB [Suspect]
     Active Substance: IPILIMUMAB
     Dosage: CONTINUATION OF IMMUNE COMBINATION THERAPY WITH 2ND ADMINISTRATION
     Dates: start: 20200519
  7. IPILIMUMAB [Suspect]
     Active Substance: IPILIMUMAB
     Dosage: 3RD AND 4TH ADMINISTRATION FOLLOWED (EACH AT AN INTERVAL OF 3 WEEKS)
  8. IPILIMUMAB [Suspect]
     Active Substance: IPILIMUMAB
     Dosage: 3RD AND 4TH ADMINISTRATION FOLLOWED (EACH AT AN INTERVAL OF 3 WEEKS)

REACTIONS (12)
  - Rash [Unknown]
  - Somnolence [Unknown]
  - Brain oedema [Unknown]
  - Headache [Unknown]
  - Hepatic enzyme increased [Unknown]
  - Road traffic accident [Unknown]
  - Craniocerebral injury [Unknown]
  - General physical health deterioration [Unknown]
  - Fall [Unknown]
  - Dementia [Unknown]
  - Graft versus host disease [Unknown]
  - Ischaemia [Unknown]

NARRATIVE: CASE EVENT DATE: 20200311
